FAERS Safety Report 7551015-6 (Version None)
Quarter: 2011Q2

REPORT INFORMATION
  Report Type: 
  Country: None (occurrence: None)
  Receive Date: 20110616
  Receipt Date: 20110606
  Transmission Date: 20111010
  Serious: Yes (Hospitalization)
  Sender: FDA-Public Use
  Company Number: FR-ELI_LILLY_AND_COMPANY-FR201104000649

PATIENT
  Age: 69 Year
  Sex: Female
  Weight: 72 kg

DRUGS (5)
  1. CACIT D3 [Concomitant]
     Indication: OSTEOPOROSIS
     Dosage: 1 DF, QD
     Route: 048
  2. UVEDOSE [Concomitant]
     Indication: OSTEOPOROSIS
     Dosage: 1 DF, OTHER
     Route: 048
  3. FORTEO [Suspect]
     Indication: OSTEOPOROSIS
     Dosage: 20 UG, QD
     Route: 058
     Dates: start: 20100721
  4. TRAMADOL HCL [Concomitant]
     Indication: BACK PAIN
     Dosage: 200 MG, BID
     Route: 048
  5. ACETAMINOPHEN [Concomitant]
     Indication: BACK PAIN
     Dosage: 500 MG, TID
     Route: 048

REACTIONS (1)
  - HERNIAL EVENTRATION [None]
